FAERS Safety Report 14188756 (Version 1)
Quarter: 2017Q4

REPORT INFORMATION
  Report Type: Report from Study
  Country: None (occurrence: ES)
  Receive Date: 20171114
  Receipt Date: 20171114
  Transmission Date: 20180321
  Serious: Yes (Death)
  Sender: FDA-Public Use
  Company Number: ES-ABBVIE-17K-144-2161748-00

PATIENT
  Age: 78 Year
  Sex: Male

DRUGS (1)
  1. DUODOPA [Suspect]
     Active Substance: CARBIDOPA\LEVODOPA
     Indication: PARKINSON^S DISEASE
     Route: 050
     Dates: start: 20160622

REACTIONS (3)
  - Salivary hypersecretion [Unknown]
  - Aspiration [Fatal]
  - Infarction [Fatal]

NARRATIVE: CASE EVENT DATE: 20171109
